FAERS Safety Report 5950608-7 (Version None)
Quarter: 2008Q4

REPORT INFORMATION
  Report Type: 
  Country: None (occurrence: None)
  Receive Date: 20081112
  Receipt Date: 20081103
  Transmission Date: 20090506
  Serious: Yes (Hospitalization)
  Sender: FDA-Public Use
  Company Number: FR-ABBOTT-08P-056-0485410-00

PATIENT
  Age: 51 Year
  Sex: Male

DRUGS (3)
  1. LIPANTHYL [Suspect]
     Indication: HYPERCHOLESTEROLAEMIA
     Route: 048
     Dates: start: 20080801, end: 20080830
  2. AZATHIOPRINE [Suspect]
     Indication: ALLERGIC GRANULOMATOUS ANGIITIS
     Route: 048
     Dates: start: 20080801, end: 20080830
  3. AZATHIOPRINE [Suspect]

REACTIONS (1)
  - CYTOLYTIC HEPATITIS [None]
